FAERS Safety Report 6578189-8 (Version None)
Quarter: 2010Q1

REPORT INFORMATION
  Report Type: 
  Country: None (occurrence: None)
  Receive Date: 20100211
  Receipt Date: 20100202
  Transmission Date: 20100710
  Serious: Yes (Death, Hospitalization)
  Sender: FDA-Public Use
  Company Number: GXKR2010IT01424

PATIENT
  Age: 43 Year
  Sex: Male
  Weight: 63 kg

DRUGS (14)
  1. AMITRIPTYLINE (NGX) [Interacting]
     Dosage: 25 MG, QD
     Route: 065
     Dates: start: 20070501
  2. NIFEDIPINE [Interacting]
     Indication: HYPERTENSION
     Dosage: 30 MG, BID
     Route: 065
     Dates: start: 20071031, end: 20071102
  3. ZIDOVUDINE (NGX) [Suspect]
     Indication: HIV INFECTION
     Dosage: 250 MG, BID
     Route: 065
     Dates: start: 19980101, end: 19990101
  4. DIDANOSINE [Suspect]
     Indication: HIV INFECTION
     Dosage: 400 MG, QD
     Route: 065
     Dates: start: 19990101, end: 20010101
  5. STAVUDINE [Suspect]
     Indication: HIV INFECTION
     Dosage: 40 MG, BID
     Route: 065
     Dates: start: 19990101, end: 20010101
  6. DISULFIRAM [Interacting]
     Indication: ALCOHOL ABUSE
     Dosage: 200 MG, QD
     Route: 065
     Dates: start: 20070501
  7. FOSAMPRENAVIR [Interacting]
     Indication: ANTIRETROVIRAL THERAPY
     Dosage: 700 MG, BID
     Route: 065
     Dates: start: 20070401
  8. TENOFOVIR [Interacting]
     Indication: ANTIRETROVIRAL THERAPY
     Dosage: 300 MG, QD
     Route: 065
     Dates: start: 20070401
  9. EMTRICITABINE [Suspect]
     Indication: ANTIRETROVIRAL THERAPY
     Dosage: 200 MG, QD
     Route: 065
     Dates: start: 20070401
  10. RITONAVIR [Interacting]
     Indication: ANTIRETROVIRAL THERAPY
     Dosage: 100 MG, BID
     Route: 065
     Dates: start: 20070401
  11. GABAPENTIN [Concomitant]
     Indication: NEUROPATHY PERIPHERAL
     Dosage: 400 MG, QD
     Dates: start: 20070401
  12. VITAMIN B COMPLEX CAP [Concomitant]
     Indication: NEUROPATHY PERIPHERAL
     Dosage: UNK
     Dates: start: 20070401
  13. MAGNESIUM [Concomitant]
     Indication: NEUROPATHY PERIPHERAL
     Dosage: 1500 MG, QD
  14. LORAZEPAM [Concomitant]
     Indication: SLEEP DISORDER
     Dosage: 2.5 MG, QD
     Dates: start: 20070401

REACTIONS (13)
  - ABDOMINAL DISTENSION [None]
  - ABDOMINAL PAIN [None]
  - CONFUSIONAL STATE [None]
  - DRUG INTERACTION [None]
  - DYSPNOEA [None]
  - HYPERTENSION [None]
  - HYPOTENSION [None]
  - LACTIC ACIDOSIS [None]
  - LOSS OF CONSCIOUSNESS [None]
  - MALAISE [None]
  - MULTI-ORGAN FAILURE [None]
  - SOMNOLENCE [None]
  - TACHYPNOEA [None]
